FAERS Safety Report 17022853 (Version 1)
Quarter: 2019Q4

REPORT INFORMATION
  Report Type: Spontaneous
  Country: US (occurrence: US)
  Receive Date: 20191112
  Receipt Date: 20191112
  Transmission Date: 20200122
  Serious: Yes (Other)
  Sender: FDA-Public Use
  Company Number: US-IGSA-SR10009386

PATIENT
  Age: 86 Year
  Sex: Female
  Weight: 72 kg

DRUGS (3)
  1. GAMUNEX-C [Suspect]
     Active Substance: HUMAN IMMUNOGLOBULIN G
     Indication: CHRONIC INFLAMMATORY DEMYELINATING POLYRADICULONEUROPATHY
     Dosage: 70 G, Q.3WK.
     Route: 042
     Dates: start: 20191029
  2. BENADRYL [Concomitant]
     Active Substance: DIPHENHYDRAMINE HYDROCHLORIDE
     Indication: PREMEDICATION
  3. APAP [Concomitant]
     Active Substance: ACETAMINOPHEN
     Indication: PREMEDICATION

REACTIONS (5)
  - Rash [Recovered/Resolved]
  - Nervousness [Recovered/Resolved]
  - Dyspnoea [Recovered/Resolved]
  - Nausea [Recovered/Resolved]
  - Blood pressure increased [Recovered/Resolved]

NARRATIVE: CASE EVENT DATE: 20191029
